FAERS Safety Report 6607051-7 (Version None)
Quarter: 2010Q1

REPORT INFORMATION
  Report Type: 
  Country: None (occurrence: None)
  Receive Date: 20100219
  Receipt Date: 20100217
  Transmission Date: 20100710
  Serious: Yes (Death)
  Sender: FDA-Public Use
  Company Number: 2010000622

PATIENT
  Age: 80 Year
  Sex: Male
  Weight: 112.0385 kg

DRUGS (6)
  1. TREANDA [Suspect]
     Indication: CHRONIC LYMPHOCYTIC LEUKAEMIA
     Dosage: 13.1429 MG (276 MG, RECEIVED 1 CYCLE), INTRAVENOUS (NOT OTHERWISE SPECIFIED)
     Route: 042
     Dates: start: 20100120, end: 20100121
  2. PREVACID [Concomitant]
  3. NIFEDIPINE [Concomitant]
  4. ZETIA [Concomitant]
  5. LISINOPRIL [Concomitant]
  6. METOPROLOL (METOPROLOL) [Concomitant]

REACTIONS (5)
  - CARDIOVASCULAR DISORDER [None]
  - CHRONIC OBSTRUCTIVE PULMONARY DISEASE [None]
  - CORONARY ARTERY DISEASE [None]
  - HYPERTENSION [None]
  - SUDDEN DEATH [None]
